FAERS Safety Report 5635113-X (Version None)
Quarter: 2008Q1

REPORT INFORMATION
  Report Type: 
  Country: None (occurrence: None)
  Receive Date: 20080131
  Receipt Date: 20071112
  Transmission Date: 20080703
  Serious: No
  Sender: FDA-Public Use
  Company Number: 163-21880-07110722

PATIENT
  Age: 73 Year
  Sex: Male

DRUGS (3)
  1. REVLIMID [Suspect]
     Indication: LYMPHATIC SYSTEM NEOPLASM
     Dosage: 10 MG, 1 IN 1 D, ORAL ; 5 MG, 1 IN 1 D, ORAL ; 5 MG, EVERY OTHER DAY, ORAL
     Route: 048
     Dates: start: 20060424, end: 20070501
  2. REVLIMID [Suspect]
     Indication: LYMPHATIC SYSTEM NEOPLASM
     Dosage: 10 MG, 1 IN 1 D, ORAL ; 5 MG, 1 IN 1 D, ORAL ; 5 MG, EVERY OTHER DAY, ORAL
     Route: 048
     Dates: start: 20070525, end: 20070801
  3. REVLIMID [Suspect]
     Indication: LYMPHATIC SYSTEM NEOPLASM
     Dosage: 10 MG, 1 IN 1 D, ORAL ; 5 MG, 1 IN 1 D, ORAL ; 5 MG, EVERY OTHER DAY, ORAL
     Route: 048
     Dates: start: 20070907

REACTIONS (2)
  - LIP EXFOLIATION [None]
  - RASH [None]
